FAERS Safety Report 23472947 (Version 1)
Quarter: 2024Q1

REPORT INFORMATION
  Report Type: Spontaneous
  Country: US (occurrence: US)
  Receive Date: 20240203
  Receipt Date: 20240203
  Transmission Date: 20240409
  Serious: Yes (Other)
  Sender: FDA-Public Use
  Company Number: US-HORIZON THERAPEUTICS-HZN-2022-002043

PATIENT

DRUGS (9)
  1. TEPEZZA [Suspect]
     Active Substance: TEPROTUMUMAB-TRBW
     Indication: Endocrine ophthalmopathy
     Dosage: INFUSION 1, STARTED IN MAY OR JUN 2021
     Route: 042
     Dates: start: 2021
  2. TEPEZZA [Suspect]
     Active Substance: TEPROTUMUMAB-TRBW
     Dosage: 4TH INFUSION
     Route: 042
     Dates: start: 20210826
  3. APIXABAN [Concomitant]
     Active Substance: APIXABAN
     Dosage: 2.5 MG, BID
  4. ATORVASTATIN [Concomitant]
     Active Substance: ATORVASTATIN
     Dosage: 40 MG, DAILY
  5. CARVEDILOL [Concomitant]
     Active Substance: CARVEDILOL
     Dosage: 3.125 MG, BID
  6. PLAVIX [Concomitant]
     Active Substance: CLOPIDOGREL BISULFATE
     Dosage: 75 MG, DAILY
  7. SYNTHROID [Concomitant]
     Active Substance: LEVOTHYROXINE SODIUM
     Dosage: 112 UG, DAILY
  8. MELOXICAM [Concomitant]
     Active Substance: MELOXICAM
     Dosage: 15 MG, DAILY
  9. PANTOPRAZOLE [Concomitant]
     Active Substance: PANTOPRAZOLE
     Dosage: 40 MG, DAILY

REACTIONS (1)
  - Blood glucose increased [Recovered/Resolved]
